FAERS Safety Report 25385790 (Version 2)
Quarter: 2025Q2

REPORT INFORMATION
  Report Type: Report from Study
  Country: US (occurrence: US)
  Receive Date: 20250602
  Receipt Date: 20250616
  Transmission Date: 20250716
  Serious: Yes (Other)
  Sender: OTSUKA
  Company Number: US-MMM-Otsuka-O5S0LX24

PATIENT
  Sex: Female

DRUGS (1)
  1. TOLVAPTAN [Suspect]
     Active Substance: TOLVAPTAN
     Indication: Congenital cystic kidney disease
     Route: 065
     Dates: start: 20210430

REACTIONS (7)
  - Tibia fracture [Unknown]
  - Fibula fracture [Unknown]
  - Shoulder fracture [Unknown]
  - Humerus fracture [Unknown]
  - Rib fracture [Unknown]
  - Shoulder arthroplasty [Unknown]
  - Loss of consciousness [Unknown]

NARRATIVE: CASE EVENT DATE: 20250430
